FAERS Safety Report 21228368 (Version 1)
Quarter: 2022Q3

REPORT INFORMATION
  Report Type: Report from Study
  Country: ES (occurrence: ES)
  Receive Date: 20220818
  Receipt Date: 20220818
  Transmission Date: 20221026
  Serious: Yes (Other)
  Sender: FDA-Public Use
  Company Number: ES-JNJFOC-20210638495

PATIENT
  Sex: Female
  Weight: 86 kg

DRUGS (9)
  1. MACITENTAN [Suspect]
     Active Substance: MACITENTAN
     Indication: Pulmonary arterial hypertension
     Route: 048
     Dates: start: 20181108
  2. ADCIRCA [Suspect]
     Active Substance: TADALAFIL
     Indication: Pulmonary arterial hypertension
     Route: 048
     Dates: start: 20160719, end: 20190625
  3. RIOCIGUAT [Concomitant]
     Active Substance: RIOCIGUAT
     Indication: Pulmonary arterial hypertension
     Route: 048
     Dates: start: 20191219, end: 20200109
  4. RIOCIGUAT [Concomitant]
     Active Substance: RIOCIGUAT
     Route: 048
     Dates: start: 20200109, end: 20200123
  5. RIOCIGUAT [Concomitant]
     Active Substance: RIOCIGUAT
     Route: 048
     Dates: start: 20200123, end: 20200206
  6. RIOCIGUAT [Concomitant]
     Active Substance: RIOCIGUAT
     Route: 048
     Dates: start: 20200206
  7. SINTROM [Concomitant]
     Active Substance: ACENOCOUMAROL
     Indication: Pulmonary arterial hypertension
     Route: 048
     Dates: start: 2015
  8. OMEPRAZOLE [Concomitant]
     Active Substance: OMEPRAZOLE
     Indication: Gastrointestinal disorder therapy
     Route: 048
     Dates: start: 2015
  9. PREDNISONE [Concomitant]
     Active Substance: PREDNISONE
     Indication: Conjunctival irritation
     Route: 048
     Dates: start: 20181120

REACTIONS (1)
  - Deafness [Not Recovered/Not Resolved]

NARRATIVE: CASE EVENT DATE: 20190620
